FAERS Safety Report 12100829 (Version 2)
Quarter: 2016Q3

REPORT INFORMATION
  Report Type: Report from Study
  Country: AR (occurrence: AR)
  Receive Date: 20160222
  Receipt Date: 20160719
  Transmission Date: 20161109
  Serious: Yes (Hospitalization, Other)
  Sender: FDA-Public Use
  Company Number: PHHO2014AR017662

PATIENT
  Age: 24 Year
  Sex: Female
  Weight: 94.5 kg

DRUGS (11)
  1. KLOSIDOL [Concomitant]
     Indication: UVEITIS
     Dosage: 500 CM3, PRN
     Route: 042
     Dates: start: 20140312, end: 20140313
  2. SODIUM HEPARIN [Concomitant]
     Active Substance: HEPARIN SODIUM
     Indication: UVEITIS
     Dosage: 5000 IU, PRN
     Route: 058
     Dates: start: 20140315, end: 20140325
  3. ONDANSETRON [Concomitant]
     Active Substance: ONDANSETRON
     Indication: UVEITIS
     Dosage: 1 DF, PRN
     Route: 042
     Dates: start: 20140312, end: 20140314
  4. LACTULON//LACTULOSE [Concomitant]
     Indication: UVEITIS
     Dosage: 15 ML, PRN
     Route: 048
     Dates: start: 20140316, end: 20140324
  5. SOLU-MEDROL [Concomitant]
     Active Substance: METHYLPREDNISOLONE SODIUM SUCCINATE
     Indication: UVEITIS
     Dosage: 1 G, PRN
     Route: 042
     Dates: start: 20140315, end: 20140315
  6. FLUOXETINE [Concomitant]
     Active Substance: FLUOXETINE HYDROCHLORIDE
     Indication: UVEITIS
     Dosage: 20 MG, QD
     Route: 048
     Dates: start: 20140312, end: 20140324
  7. RANITIDINE. [Concomitant]
     Active Substance: RANITIDINE
     Indication: UVEITIS
     Dosage: 150 MG, PRN
     Route: 048
     Dates: start: 20140312, end: 20140324
  8. TRAMETINIB [Suspect]
     Active Substance: TRAMETINIB
     Indication: MALIGNANT MELANOMA
     Dosage: 2 MG, QD
     Route: 048
     Dates: start: 20140211, end: 20140227
  9. DABRAFENIB [Suspect]
     Active Substance: DABRAFENIB
     Indication: MALIGNANT MELANOMA
     Dosage: UNK
     Route: 048
     Dates: start: 20140211, end: 20140227
  10. METOCLOPRAMIDA [Concomitant]
     Active Substance: METOCLOPRAMIDE HYDROCHLORIDE
     Indication: UVEITIS
     Dosage: 1 DF, PRN
     Route: 042
     Dates: start: 20140312, end: 20140314
  11. DELTASONE B [Concomitant]
     Indication: UVEITIS
     Dosage: 80 MG, QD
     Route: 048
     Dates: start: 20140315, end: 20140324

REACTIONS (2)
  - Retinal detachment [Recovering/Resolving]
  - Uveitis [Recovered/Resolved]

NARRATIVE: CASE EVENT DATE: 20140311
